FAERS Safety Report 7057931-6 (Version None)
Quarter: 2010Q4

REPORT INFORMATION
  Report Type: 
  Country: None (occurrence: None)
  Receive Date: 20101021
  Receipt Date: 20101021
  Transmission Date: 20110411
  Serious: No
  Sender: FDA-Public Use
  Company Number: None

PATIENT
  Age: 33 Year
  Sex: Female
  Weight: 47.6277 kg

DRUGS (5)
  1. GEODON [Suspect]
     Indication: BIPOLAR DISORDER
     Dosage: 40MG ONCE DAILY PO
     Route: 048
     Dates: start: 20101008, end: 20101014
  2. GEODON [Suspect]
     Indication: MOOD SWINGS
     Dosage: 40MG ONCE DAILY PO
     Route: 048
     Dates: start: 20101008, end: 20101014
  3. GEODON [Suspect]
     Dosage: 20MG ONCE DAILY PO
     Route: 048
     Dates: start: 20101015, end: 20101019
  4. PRISTIQ [Concomitant]
  5. BUSPAR [Concomitant]

REACTIONS (7)
  - DECREASED APPETITE [None]
  - HEADACHE [None]
  - MIDDLE INSOMNIA [None]
  - MUSCLE TWITCHING [None]
  - NAUSEA [None]
  - PYREXIA [None]
  - VULVOVAGINAL PAIN [None]
